FAERS Safety Report 14324837 (Version 1)
Quarter: 2017Q4

REPORT INFORMATION
  Report Type: Spontaneous
  Country: US (occurrence: US)
  Receive Date: 20171226
  Receipt Date: 20171226
  Transmission Date: 20180321
  Serious: Yes (Life-Threatening, Other)
  Sender: FDA-Public Use
  Company Number: US-GLENMARK PHARMACEUTICALS-2017GMK026035

PATIENT
  Age: 71 Year
  Sex: Female

DRUGS (7)
  1. VORICONAZOLE. [Suspect]
     Active Substance: VORICONAZOLE
     Indication: ENCEPHALITIS
     Dosage: UNK
     Route: 042
  2. CANCIDAS [Concomitant]
     Active Substance: CASPOFUNGIN ACETATE
     Indication: ENCEPHALITIS
     Dosage: 5 MG, QD ADMINISTERED INTRAVENTRICULARLY
     Route: 050
  3. SODIUM CHLORIDE. [Concomitant]
     Active Substance: SODIUM CHLORIDE
     Indication: ENCEPHALITIS
     Dosage: 10.8 ML, ADMINISTERED INTRAVENTRICULARLY
     Route: 050
  4. NORMAL SALINE [Concomitant]
     Active Substance: SODIUM CHLORIDE
     Indication: PRODUCT USED FOR UNKNOWN INDICATION
     Dosage: 5 ML, QD ADMINISTERED INTRAVENTRICULARLY STERILE, PRESERVATIVE-FREE
     Route: 050
  5. VORICONAZOLE. [Suspect]
     Active Substance: VORICONAZOLE
     Indication: ENCEPHALITIS
     Dosage: THROUGH PEG TUBE
     Route: 048
  6. TERBINAFINE HCL [Suspect]
     Active Substance: TERBINAFINE HYDROCHLORIDE
     Indication: ENCEPHALITIS
     Dosage: 250 MG, QD
     Route: 048
  7. TERBINAFINE HCL [Suspect]
     Active Substance: TERBINAFINE HYDROCHLORIDE
     Dosage: 250 MG, BID DAILY BY PEG TUBE
     Route: 065

REACTIONS (1)
  - Treatment failure [Unknown]
